FAERS Safety Report 6790378-6 (Version None)
Quarter: 2010Q2

REPORT INFORMATION
  Report Type: 
  Country: None (occurrence: None)
  Receive Date: 20100624
  Receipt Date: 20100614
  Transmission Date: 20101027
  Serious: Yes (Hospitalization)
  Sender: FDA-Public Use
  Company Number: PHHY2010MX38832

PATIENT
  Sex: Female

DRUGS (5)
  1. RASILEZ [Suspect]
     Indication: HYPERTENSION
     Dosage: 1 TABLET (300 MG) DAILY
     Route: 048
     Dates: start: 20091001
  2. NORVASC [Concomitant]
     Indication: HYPERTENSION
     Dosage: 1 TABLET
     Dates: start: 20080101
  3. SERMION [Concomitant]
     Dosage: 1 TABLET DAILY
     Dates: start: 20080101
  4. ATACAND HCT [Concomitant]
     Indication: HYPERTENSION
     Dosage: UNK
  5. CRESTOR [Concomitant]
     Indication: BLOOD CHOLESTEROL INCREASED
     Dosage: UNK

REACTIONS (2)
  - BLOOD GLUCOSE INCREASED [None]
  - BLOOD PRESSURE INCREASED [None]
